FAERS Safety Report 8355572-1 (Version None)
Quarter: 2012Q2

REPORT INFORMATION
  Report Type: 
  Country: None (occurrence: None)
  Receive Date: 20120513
  Receipt Date: 20120502
  Transmission Date: 20120825
  Serious: Yes (Hospitalization)
  Sender: FDA-Public Use
  Company Number: US-ELI_LILLY_AND_COMPANY-US201110004408

PATIENT
  Sex: Female

DRUGS (10)
  1. MECLIZINE [Concomitant]
     Dosage: 25 MG, UNK
  2. CALCIUM CARBONATE [Concomitant]
  3. FEXOFENADINE [Concomitant]
  4. SIMVASTATIN [Concomitant]
  5. DICLOFENAC [Concomitant]
  6. OMEPRAZOLE [Concomitant]
     Dosage: 20 MG, UNK
  7. FORTEO [Suspect]
     Indication: OSTEOPOROSIS
     Dosage: 20 UG, QD
  8. FORTEO [Suspect]
     Dosage: 20 UG, UNK
  9. MULTI-VITAMINS [Concomitant]
  10. ADVAIR DISKUS 100/50 [Concomitant]

REACTIONS (4)
  - POSTURE ABNORMAL [None]
  - SPINAL FRACTURE [None]
  - FATIGUE [None]
  - PAIN [None]
